FAERS Safety Report 15428629 (Version 1)
Quarter: 2018Q3

REPORT INFORMATION
  Report Type: Spontaneous
  Country: IT (occurrence: IT)
  Receive Date: 20180926
  Receipt Date: 20180926
  Transmission Date: 20181010
  Serious: Yes (Hospitalization)
  Sender: FDA-Public Use
  Company Number: IT-DRREDDYS-GER/ITL/18/0104248

PATIENT
  Age: 88 Year
  Sex: Female
  Weight: 50 kg

DRUGS (1)
  1. CLOPIDOGREL [Suspect]
     Active Substance: CLOPIDOGREL BISULFATE
     Indication: ISCHAEMIC STROKE
     Route: 048
     Dates: start: 20170710, end: 20180911

REACTIONS (2)
  - Duodenal ulcer [Not Recovered/Not Resolved]
  - Oesophageal ulcer [Not Recovered/Not Resolved]

NARRATIVE: CASE EVENT DATE: 20180820
